FAERS Safety Report 9542531 (Version 9)
Quarter: 2013Q4

REPORT INFORMATION
  Report Type: Report from Study
  Country: US (occurrence: US)
  Receive Date: 20130923
  Receipt Date: 20131203
  Transmission Date: 20140711
  Serious: Yes (Other)
  Sender: FDA-Public Use
  Company Number: US-SANOFI-AVENTIS-2013SA088726

PATIENT
  Age: 56 Year
  Sex: Female
  Weight: 157 kg

DRUGS (16)
  1. AUBAGIO [Suspect]
     Indication: MULTIPLE SCLEROSIS
     Route: 048
     Dates: start: 20130829, end: 20130831
  2. AUBAGIO [Suspect]
     Indication: MULTIPLE SCLEROSIS
     Route: 048
     Dates: start: 20130927, end: 20131030
  3. OMEPRAZOLE [Concomitant]
  4. LOSARTAN POTASSIUM [Concomitant]
  5. CYMBALTA [Concomitant]
  6. LEVOXYL [Concomitant]
  7. DIAZEPAM [Concomitant]
  8. LACTULOSE [Concomitant]
  9. ALL OTHER THERAPEUTIC PRODUCTS [Concomitant]
  10. CALCIUM [Concomitant]
  11. VITAMIN D3 [Concomitant]
  12. ALL OTHER THERAPEUTIC PRODUCTS [Concomitant]
  13. VITAMIN B12 [Concomitant]
  14. MAGNESIUM/POTASSIUM [Concomitant]
  15. CRANBERRY EXTRACT [Concomitant]
  16. NIACIN [Concomitant]

REACTIONS (13)
  - Clostridial infection [Recovered/Resolved]
  - Kidney infection [Unknown]
  - Fungal infection [Unknown]
  - Dizziness [Unknown]
  - Multiple sclerosis relapse [Recovered/Resolved]
  - Enteritis [Unknown]
  - Leukopenia [Recovered/Resolved]
  - Alopecia [Unknown]
  - Formication [Unknown]
  - Nausea [Unknown]
  - Confusional state [Unknown]
  - Weight decreased [Unknown]
  - Abdominal infection [Unknown]
